FAERS Safety Report 18725755 (Version 1)
Quarter: 2021Q1

REPORT INFORMATION
  Report Type: Report from Study
  Country: None (occurrence: CA)
  Receive Date: 20210111
  Receipt Date: 20210111
  Transmission Date: 20210419
  Serious: Yes (Death, Other)
  Sender: FDA-Public Use
  Company Number: CA-ABBVIE-19K-028-3156194-00

PATIENT
  Age: 72 Year
  Sex: Male

DRUGS (2)
  1. IMBRUVICA [Suspect]
     Active Substance: IBRUTINIB
     Indication: WALDENSTROM^S MACROGLOBULINAEMIA
     Route: 048
     Dates: start: 20160818
  2. IMBRUVICA [Suspect]
     Active Substance: IBRUTINIB
     Route: 048
     Dates: start: 20160916

REACTIONS (3)
  - Diffuse large B-cell lymphoma [Fatal]
  - Lymphatic system neoplasm [Unknown]
  - Haemorrhage [Unknown]

NARRATIVE: CASE EVENT DATE: 20190805
